FAERS Safety Report 9459326 (Version 2)
Quarter: 2013Q3

REPORT INFORMATION
  Report Type: Spontaneous
  Country: US (occurrence: US)
  Receive Date: 20130815
  Receipt Date: 20130827
  Transmission Date: 20140515
  Serious: No
  Sender: FDA-Public Use
  Company Number: US-009507513-1307USA009021

PATIENT
  Sex: Female

DRUGS (3)
  1. FOLLISTIM AQ CARTRIDGE [Suspect]
     Indication: ASSISTED FERTILISATION
     Dosage: 75 IU QD, FOR 7 DAYS
     Route: 058
     Dates: start: 20130709, end: 20130715
  2. ZOMIG [Concomitant]
  3. ALPRAZOLAM [Concomitant]

REACTIONS (5)
  - Pelvic discomfort [Recovered/Resolved]
  - Headache [Recovered/Resolved]
  - Liquid product physical issue [Unknown]
  - Liquid product physical issue [Unknown]
  - Incorrect product storage [Unknown]
